FAERS Safety Report 5392240-2 (Version None)
Quarter: 2007Q3

REPORT INFORMATION
  Report Type: 
  Country: None (occurrence: None)
  Receive Date: 20070720
  Receipt Date: 20070717
  Transmission Date: 20080115
  Serious: Yes (Hospitalization, Other)
  Sender: FDA-Public Use
  Company Number: US-ELI_LILLY_AND_COMPANY-US200707004361

PATIENT
  Sex: Male

DRUGS (2)
  1. GEMCITABINE HCL [Suspect]
     Indication: PANCREATIC CARCINOMA
     Dosage: 1000 MG/M2, WEEKLY (1/W)
     Route: 042
  2. ERLOTINIB [Concomitant]
     Indication: PANCREATIC CARCINOMA
     Dosage: 150 MG, DAILY (1/D)

REACTIONS (5)
  - HAEMOPTYSIS [None]
  - LUNG INJURY [None]
  - MASS [None]
  - PULMONARY OEDEMA [None]
  - RESPIRATORY DISTRESS [None]
